FAERS Safety Report 10390681 (Version 2)
Quarter: 2014Q3

REPORT INFORMATION
  Report Type: Spontaneous
  Country: NL (occurrence: NL)
  Receive Date: 20140818
  Receipt Date: 20140826
  Transmission Date: 20150326
  Serious: Yes (Death)
  Sender: FDA-Public Use
  Company Number: NL-SA-2014SA098185

PATIENT
  Age: 17 Year
  Sex: Female

DRUGS (2)
  1. DOMPERIDONE [Concomitant]
     Active Substance: DOMPERIDONE
     Indication: NAUSEA
     Route: 048
     Dates: start: 20140516, end: 20140518
  2. CHLOROQUINE [Suspect]
     Active Substance: CHLOROQUINE\CHLOROQUINE PHOSPHATE
     Indication: COMPLETED SUICIDE
     Route: 048
     Dates: start: 20140518, end: 20140518

REACTIONS (3)
  - Completed suicide [Fatal]
  - Overdose [Fatal]
  - Cardiac failure [Fatal]

NARRATIVE: CASE EVENT DATE: 20140518
